FAERS Safety Report 7832112-4 (Version None)
Quarter: 2011Q4

REPORT INFORMATION
  Report Type: 
  Country: None (occurrence: None)
  Receive Date: 20111022
  Receipt Date: 20111005
  Transmission Date: 20120403
  Serious: Yes (Hospitalization, Other)
  Sender: FDA-Public Use
  Company Number: US-BAYER-2011-050337

PATIENT
  Age: 26 Year
  Sex: Female
  Weight: 75 kg

DRUGS (8)
  1. CELEXA [Concomitant]
     Indication: DEPRESSION
  2. GYNAZOLE [Concomitant]
     Dosage: UNK
     Dates: start: 20050812, end: 20051128
  3. TESTOSTERONE PROPIONATE [Concomitant]
     Dosage: UNK
     Dates: start: 20050825, end: 20060202
  4. AMBIEN [Concomitant]
     Indication: INSOMNIA
     Dosage: 10 MG, PRN
     Route: 048
     Dates: start: 20050803, end: 20090914
  5. BUPROPION HYDROCHLORIDE [Concomitant]
     Dosage: UNK
     Route: 048
     Dates: start: 20050803, end: 20051101
  6. GOODY POWDER (ASPIRIN, CAFFEINE) [Concomitant]
     Indication: HEADACHE
     Dosage: UNK UNK, PRN
  7. YASMIN [Suspect]
     Indication: POLYCYSTIC OVARIES
     Dosage: UNK
     Dates: start: 20051001, end: 20051201
  8. LEXAPRO [Concomitant]
     Dosage: UNK
     Dates: start: 20051101

REACTIONS (3)
  - PULMONARY EMBOLISM [None]
  - PAIN [None]
  - DEPRESSION [None]
